FAERS Safety Report 7789504-1 (Version None)
Quarter: 2011Q3

REPORT INFORMATION
  Report Type: 
  Country: None (occurrence: None)
  Receive Date: 20110930
  Receipt Date: 20110922
  Transmission Date: 20111222
  Serious: Yes (Death, Hospitalization, Other)
  Sender: FDA-Public Use
  Company Number: US-CUBIST-2010S1001328

PATIENT
  Age: 81 Year
  Sex: Male
  Weight: 81.78 kg

DRUGS (3)
  1. CUBICIN [Suspect]
     Indication: STAPHYLOCOCCAL INFECTION
     Route: 042
     Dates: start: 20100707, end: 20100725
  2. CELEBREX [Concomitant]
     Indication: PRODUCT USED FOR UNKNOWN INDICATION
  3. CUBICIN [Suspect]
     Indication: DEVICE RELATED INFECTION
     Route: 042
     Dates: start: 20100707, end: 20100725

REACTIONS (3)
  - VIRAL INFECTION [None]
  - EOSINOPHILIC PNEUMONIA [None]
  - PNEUMOCYSTIS JIROVECI INFECTION [None]
